FAERS Safety Report 18145943 (Version 2)
Quarter: 2020Q4

REPORT INFORMATION
  Report Type: Spontaneous
  Country: US (occurrence: US)
  Receive Date: 20200813
  Receipt Date: 20201015
  Transmission Date: 20210113
  Serious: Yes (Disabling, Other)
  Sender: FDA-Public Use
  Company Number: US-ASTRAZENECA-2020SF01025

PATIENT
  Sex: Female

DRUGS (1)
  1. BYETTA [Suspect]
     Active Substance: EXENATIDE
     Route: 065
     Dates: start: 2010

REACTIONS (10)
  - Agitation [Unknown]
  - Disability [Unknown]
  - Myocardial infarction [Unknown]
  - Product packaging quantity issue [Unknown]
  - Device issue [Unknown]
  - Injury [Unknown]
  - Fall [Unknown]
  - Adverse event [Unknown]
  - Drug dependence [Unknown]
  - Spinal cord injury [Unknown]
